FAERS Safety Report 24988883 (Version 1)
Quarter: 2025Q1

REPORT INFORMATION
  Report Type: Report from Study
  Country: CA (occurrence: CA)
  Receive Date: 20250220
  Receipt Date: 20250220
  Transmission Date: 20250408
  Serious: Yes (Other)
  Sender: TAKEDA
  Company Number: CA-TAKEDA-2025TUS017642

PATIENT
  Sex: Male

DRUGS (2)
  1. VEDOLIZUMAB [Suspect]
     Active Substance: VEDOLIZUMAB
     Indication: Crohn^s disease
  2. Cortiment [Concomitant]
     Dosage: 9 MILLIGRAM, QD

REACTIONS (2)
  - Crohn^s disease [Recovered/Resolved]
  - Abscess oral [Recovered/Resolved]
